FAERS Safety Report 20559440 (Version 1)
Quarter: 2022Q1

REPORT INFORMATION
  Report Type: Spontaneous
  Country: CA (occurrence: CA)
  Receive Date: 20220307
  Receipt Date: 20220307
  Transmission Date: 20220424
  Serious: Yes (Other)
  Sender: FDA-Public Use
  Company Number: CA-PFIZER INC-202200315185

PATIENT
  Sex: Female

DRUGS (4)
  1. BOSUTINIB [Suspect]
     Active Substance: BOSUTINIB
     Dosage: UNK
     Route: 065
  2. DASATINIB [Suspect]
     Active Substance: DASATINIB
     Dosage: UNK
     Route: 065
  3. IMATINIB MESYLATE [Suspect]
     Active Substance: IMATINIB MESYLATE
     Dosage: UNK
     Route: 065
  4. NILOTINIB [Suspect]
     Active Substance: NILOTINIB
     Dosage: UNK
     Route: 065

REACTIONS (5)
  - Blood bilirubin increased [Unknown]
  - Drug intolerance [Unknown]
  - Hepatitis [Unknown]
  - Hypervolaemia [Unknown]
  - Neoplasm progression [Unknown]
